FAERS Safety Report 17133886 (Version 1)
Quarter: 2019Q4

REPORT INFORMATION
  Report Type: Spontaneous
  Country: US (occurrence: US)
  Receive Date: 20191210
  Receipt Date: 20191210
  Transmission Date: 20200122
  Serious: No
  Sender: FDA-Public Use
  Company Number: US-UCBSA-2016037515

PATIENT
  Age: 60 Year
  Sex: Male

DRUGS (6)
  1. LEVETIRACETAM. [Suspect]
     Active Substance: LEVETIRACETAM
     Indication: SEIZURE
     Dosage: UNKNOWN DOSE
  2. VANCOMYCIN [Concomitant]
     Active Substance: VANCOMYCIN
     Indication: ENCEPHALITIS VIRAL
     Dosage: UNKNOWN DOSE
  3. CEFTRIAXONE. [Concomitant]
     Active Substance: CEFTRIAXONE
     Indication: ENCEPHALITIS VIRAL
     Dosage: UNKNOWN DOSE
  4. ACYCLOVIR. [Concomitant]
     Active Substance: ACYCLOVIR
     Indication: ENCEPHALITIS VIRAL
     Dosage: UNKNOWN DOSE
  5. PROPOFOL. [Concomitant]
     Active Substance: PROPOFOL
     Indication: DEPRESSION
     Dosage: UNKNOWN DOSE
  6. CIPROFLOXACIN. [Concomitant]
     Active Substance: CIPROFLOXACIN
     Indication: LARGE INTESTINE INFECTION
     Dosage: UNKNOWN DOSE
     Route: 042

REACTIONS (1)
  - Drug ineffective [Unknown]
